FAERS Safety Report 9994321 (Version 1)
Quarter: 2014Q1

REPORT INFORMATION
  Report Type: Spontaneous
  Country: US (occurrence: US)
  Receive Date: 20140311
  Receipt Date: 20140311
  Transmission Date: 20141002
  Serious: Yes (Hospitalization)
  Sender: FDA-Public Use
  Company Number: US-ABBVIE-14P-163-1209642-00

PATIENT
  Sex: Male

DRUGS (2)
  1. ANDROGEL [Suspect]
     Indication: BLOOD TESTOSTERONE DECREASED
     Dosage: 1 PACKET
     Route: 061
     Dates: start: 2004, end: 2014
  2. TYLENOL [Suspect]
     Indication: PAIN MANAGEMENT

REACTIONS (2)
  - Renal impairment [Unknown]
  - Hepatic enzyme increased [Unknown]
